FAERS Safety Report 9931328 (Version 1)
Quarter: 2014Q1

REPORT INFORMATION
  Report Type: Spontaneous
  Country: US (occurrence: US)
  Receive Date: 20140228
  Receipt Date: 20140228
  Transmission Date: 20141002
  Serious: No
  Sender: FDA-Public Use
  Company Number: US-009507513-1402USA008948

PATIENT
  Age: 58 Year
  Sex: Male

DRUGS (9)
  1. SINGULAIR [Suspect]
     Indication: DERMATITIS ALLERGIC
     Dosage: UNK
     Route: 048
     Dates: end: 20140203
  2. SINGULAIR [Suspect]
     Indication: PRURITUS
  3. TUDORZA PRESSAIR [Suspect]
     Indication: CHRONIC OBSTRUCTIVE PULMONARY DISEASE
     Dosage: 800 MCG (400 MCG, 2 IN 1)
     Route: 055
     Dates: start: 20140204
  4. VENTOLIN (ALBUTEROL SULFATE) [Suspect]
     Indication: CHRONIC OBSTRUCTIVE PULMONARY DISEASE
     Dosage: UNK
     Dates: start: 20140204
  5. NEXIUM [Concomitant]
     Indication: GASTROOESOPHAGEAL REFLUX DISEASE
     Dosage: UNK
  6. LISINOPRIL [Concomitant]
     Indication: HYPERTENSION
     Dosage: UNK
  7. HYDROCHLOROTHIAZIDE [Concomitant]
     Indication: HYPERTENSION
     Dosage: UNK
  8. ADVAIR [Concomitant]
     Dosage: UNK
     Dates: end: 20140203
  9. COMBIVENT [Concomitant]
     Dosage: UNK
     Dates: end: 20140203

REACTIONS (2)
  - Rash [Not Recovered/Not Resolved]
  - Pruritus [Not Recovered/Not Resolved]
